FAERS Safety Report 5179919-2 (Version None)
Quarter: 2006Q4

REPORT INFORMATION
  Report Type: 
  Country: None (occurrence: None)
  Receive Date: 20061211
  Receipt Date: 20061123
  Transmission Date: 20070319
  Serious: Yes (Hospitalization)
  Sender: FDA-Public Use
  Company Number: 233274

PATIENT
  Age: 41 Year
  Sex: Female
  Weight: 54 kg

DRUGS (3)
  1. AVASTIN [Suspect]
     Indication: COLORECTAL CANCER
     Dosage: 390 MG, Q3W, INTRAVENOUS
     Route: 042
     Dates: start: 20060419
  2. CAPECITABINE(CAPECITABINE) [Suspect]
     Indication: COLORECTAL CANCER
     Dosage: 2500 MG, D1- 14/Q3W, ORAL
     Route: 048
     Dates: start: 20060419, end: 20060915
  3. IRINOTECAN HCL [Suspect]
     Indication: COLORECTAL CANCER
     Dosage: 225 MG, Q3W, INTRAVENOUS
     Route: 042
     Dates: start: 20060419

REACTIONS (2)
  - LEUKOPENIA [None]
  - PNEUMONIA [None]
